FAERS Safety Report 11219188 (Version 2)
Quarter: 2015Q3

REPORT INFORMATION
  Report Type: Spontaneous
  Country: US (occurrence: US)
  Receive Date: 20150625
  Receipt Date: 20150707
  Transmission Date: 20151125
  Serious: Yes (Death, Other)
  Sender: FDA-Public Use
  Company Number: US-APOTEX-2015AP010155

PATIENT

DRUGS (2)
  1. FLECAINIDE ACETATE. [Suspect]
     Active Substance: FLECAINIDE ACETATE
     Indication: ATRIAL TACHYCARDIA
     Dosage: INGESTED MULTIPLE TABLETS
     Route: 048
  2. FLECAINIDE ACETATE. [Suspect]
     Active Substance: FLECAINIDE ACETATE
     Dosage: 100 MG, DAILY
     Route: 048

REACTIONS (8)
  - Pulseless electrical activity [Fatal]
  - Multi-organ failure [Fatal]
  - Toxicity to various agents [Fatal]
  - Dizziness [Unknown]
  - Nausea [Unknown]
  - Hypotension [Fatal]
  - Intentional overdose [Fatal]
  - Confusional state [Unknown]
